FAERS Safety Report 9225267 (Version 4)
Quarter: 2013Q2

REPORT INFORMATION
  Report Type: Spontaneous
  Country: GB (occurrence: GB)
  Receive Date: 20130411
  Receipt Date: 20130627
  Transmission Date: 20140414
  Serious: Yes (Other)
  Sender: FDA-Public Use
  Company Number: PHFR2013GB002058

PATIENT
  Age: 30 Year
  Sex: Male

DRUGS (2)
  1. CLOZARIL [Suspect]
     Indication: SCHIZOPHRENIA
     Dosage: UNK
     Route: 048
     Dates: start: 20130308
  2. CLOZARIL [Suspect]
     Dosage: 200 MG
     Route: 048
     Dates: start: 20130311

REACTIONS (3)
  - Differential white blood cell count abnormal [Recovering/Resolving]
  - Eosinophil count increased [Recovering/Resolving]
  - Hypersensitivity [Unknown]
